FAERS Safety Report 24210918 (Version 1)
Quarter: 2024Q3

REPORT INFORMATION
  Report Type: Spontaneous
  Country: US (occurrence: US)
  Receive Date: 20240814
  Receipt Date: 20240814
  Transmission Date: 20241016
  Serious: No
  Sender: GLENMARK
  Company Number: US-GLENMARK PHARMACEUTICALS-2024GMK091182

PATIENT

DRUGS (2)
  1. URSODIOL [Suspect]
     Active Substance: URSODIOL
     Indication: Cardiac amyloidosis
     Dosage: 750 MILLIGRAM, TID BY MOUTH
     Route: 048
     Dates: start: 202309, end: 202403
  2. VYNDAMAX [Suspect]
     Active Substance: TAFAMIDIS
     Indication: Cardiac amyloidosis
     Dosage: 6 MILLIGRAM ONCE EVERY DAY BY MOUTH
     Route: 048
     Dates: start: 20230804, end: 20240320

REACTIONS (2)
  - Hepatic enzyme increased [Recovering/Resolving]
  - Product use in unapproved indication [Unknown]
